FAERS Safety Report 4370839-X (Version None)
Quarter: 2004Q2

REPORT INFORMATION
  Report Type: 
  Country: None (occurrence: None)
  Receive Date: 20040601
  Receipt Date: 20040517
  Transmission Date: 20050107
  Serious: Yes (Life-Threatening, Hospitalization)
  Sender: FDA-Public Use
  Company Number: 04P-028-0261395-00

PATIENT
  Age: 79 Year
  Sex: Female
  Weight: 50 kg

DRUGS (1)
  1. HUMIRA [Suspect]
     Indication: RHEUMATOID ARTHRITIS
     Dosage: 1 IN 2 WK, SUBCUTANEOUS
     Route: 058
     Dates: start: 20040421, end: 20040514

REACTIONS (2)
  - CARDIAC FAILURE CONGESTIVE [None]
  - MITRAL VALVE INCOMPETENCE [None]
